FAERS Safety Report 14924110 (Version 1)
Quarter: 2018Q2

REPORT INFORMATION
  Report Type: Spontaneous
  Country: FR (occurrence: FR)
  Receive Date: 20180522
  Receipt Date: 20180522
  Transmission Date: 20180711
  Serious: Yes (Other)
  Sender: FDA-Public Use
  Company Number: FR-SEBELA IRELAND LIMITED-2018SEB00131

PATIENT
  Sex: Male

DRUGS (5)
  1. ITRACONAZOLE. [Suspect]
     Active Substance: ITRACONAZOLE
     Indication: MENINGITIS HISTOPLASMA
     Dosage: 300 MG, Q8H
     Route: 048
  2. ITRACONAZOLE. [Suspect]
     Active Substance: ITRACONAZOLE
     Dosage: 200 MG, Q12H
     Route: 048
  3. EFAVIRENZ/EMTRICITABINE/TENOFOVIR DISOPROXIL FURAMATE [Concomitant]
     Dosage: UNK
     Route: 065
     Dates: start: 2011
  4. AMPHOTERICIN B. [Concomitant]
     Active Substance: AMPHOTERICIN B
     Dosage: 6 MG/KG, UNK
     Route: 065
  5. DARUNAVIR/RITONAVIR [Suspect]
     Active Substance: DARUNAVIR\RITONAVIR
     Indication: HIV INFECTION
     Dosage: 600/100 MG Q12H
     Route: 065

REACTIONS (2)
  - Potentiating drug interaction [Recovered/Resolved]
  - Confusional state [Recovered/Resolved]
